FAERS Safety Report 5788232-1 (Version None)
Quarter: 2008Q2

REPORT INFORMATION
  Report Type: 
  Country: None (occurrence: None)
  Receive Date: 20080625
  Receipt Date: 20080619
  Transmission Date: 20081010
  Serious: Yes (Other)
  Sender: FDA-Public Use
  Company Number: GB-WYE-G01435408

PATIENT
  Sex: Male
  Weight: 87 kg

DRUGS (4)
  1. TORISEL [Suspect]
     Indication: RENAL CANCER
     Route: 042
     Dates: start: 20080121
  2. CHLORPHENIRAMINE/HYDROCODONE [Concomitant]
     Indication: DRUG HYPERSENSITIVITY
     Dosage: 10 MG FREQUENCY UNKNOWN
     Route: 042
     Dates: start: 20080121
  3. OLMESARTAN MEDOXOMIL [Concomitant]
     Indication: HYPERTENSION
     Route: 048
  4. METOCLOPRAMIDE [Concomitant]
     Indication: ANTIEMETIC SUPPORTIVE CARE
     Route: 048
     Dates: start: 20080121

REACTIONS (4)
  - COUGH [None]
  - LOWER RESPIRATORY TRACT INFECTION [None]
  - PNEUMONITIS [None]
  - RESPIRATORY DISORDER [None]
